FAERS Safety Report 24307273 (Version 5)
Quarter: 2024Q4

REPORT INFORMATION
  Report Type: Report from Study
  Country: AU (occurrence: AU)
  Receive Date: 20240911
  Receipt Date: 20241016
  Transmission Date: 20250115
  Serious: Yes (Other)
  Sender: JOHNSON AND JOHNSON
  Company Number: AU-JNJFOC-20240876938

PATIENT
  Age: 63 Year
  Sex: Female

DRUGS (2)
  1. SIMPONI [Suspect]
     Active Substance: GOLIMUMAB
     Indication: Psoriatic arthropathy
     Dosage: 50.00 MG / 0.50 ML
     Route: 058
     Dates: start: 20210922
  2. NUCALA [Concomitant]
     Active Substance: MEPOLIZUMAB

REACTIONS (4)
  - Lung abscess [Unknown]
  - Device deployment issue [Unknown]
  - Device breakage [Unknown]
  - Product dose omission issue [Unknown]
